FAERS Safety Report 8547630-3 (Version None)
Quarter: 2012Q3

REPORT INFORMATION
  Report Type: 
  Country: None (occurrence: None)
  Receive Date: 20120727
  Receipt Date: 20120418
  Transmission Date: 20120928
  Serious: Yes (Other)
  Sender: FDA-Public Use
  Company Number: US-ASTRAZENECA-2012SE25425

PATIENT
  Age: 518 Month
  Sex: Male
  Weight: 74.8 kg

DRUGS (3)
  1. KLONOPIN [Concomitant]
     Dosage: 1 MG OR HALF MG
  2. SEROQUEL XR [Suspect]
     Indication: BIPOLAR II DISORDER
     Route: 048
     Dates: start: 20111101
  3. SEROQUEL XR [Suspect]
     Indication: DEPRESSION
     Route: 048
     Dates: start: 20111101

REACTIONS (7)
  - VOMITING [None]
  - DRUG DOSE OMISSION [None]
  - SUICIDAL IDEATION [None]
  - GASTROENTERITIS VIRAL [None]
  - INFLUENZA [None]
  - SOMNOLENCE [None]
  - DEPRESSED MOOD [None]
